FAERS Safety Report 6676602-9 (Version None)
Quarter: 2010Q2

REPORT INFORMATION
  Report Type: 
  Country: None (occurrence: None)
  Receive Date: 20100412
  Receipt Date: 20100315
  Transmission Date: 20101027
  Serious: Yes (Other)
  Sender: FDA-Public Use
  Company Number: PHHY2010AU21604

PATIENT
  Age: 44 Year
  Sex: Male

DRUGS (2)
  1. IMATINIB [Suspect]
     Indication: CHRONIC MYELOID LEUKAEMIA
     Dosage: 400 MG DAILY
     Route: 048
  2. IMATINIB [Suspect]
     Dosage: 600 MG DAILY
     Route: 048

REACTIONS (1)
  - BONE MARROW DISORDER [None]
